FAERS Safety Report 4686199-0 (Version None)
Quarter: 2005Q2

REPORT INFORMATION
  Report Type: 
  Country: None (occurrence: None)
  Receive Date: 20050607
  Receipt Date: 20050523
  Transmission Date: 20051028
  Serious: Yes (Hospitalization)
  Sender: FDA-Public Use
  Company Number: 2005078612

PATIENT
  Sex: Female
  Weight: 84.369 kg

DRUGS (4)
  1. ALPRAZOLAM [Suspect]
     Indication: ANXIETY
     Dosage: 1-2 MG (1 MG, ONCE TO TWICE A DAY), ORAL
     Route: 048
     Dates: start: 20030101
  2. NEURONTIN [Suspect]
     Indication: PHANTOM PAIN
     Dosage: ORAL
     Route: 048
     Dates: start: 20040501, end: 20040101
  3. SYNTHROID [Concomitant]
  4. MULTIVITAMIN [Concomitant]

REACTIONS (10)
  - ANXIETY [None]
  - CRYING [None]
  - DRUG EFFECT DECREASED [None]
  - DRUG INEFFECTIVE [None]
  - DRUG INTERACTION [None]
  - LIMB OPERATION [None]
  - PHANTOM PAIN [None]
  - SHOULDER OPERATION [None]
  - SUICIDAL IDEATION [None]
  - WEIGHT DECREASED [None]
